FAERS Safety Report 20846490 (Version 1)
Quarter: 2022Q2

REPORT INFORMATION
  Report Type: Report from Study
  Country: AT (occurrence: AT)
  Receive Date: 20220518
  Receipt Date: 20220518
  Transmission Date: 20220720
  Serious: Yes (Hospitalization)
  Sender: FDA-Public Use
  Company Number: AT-JNJFOC-20220140573

PATIENT
  Sex: Female
  Weight: 55 kg

DRUGS (6)
  1. MACITENTAN [Suspect]
     Active Substance: MACITENTAN
     Indication: Pulmonary arterial hypertension
     Route: 048
     Dates: start: 20201201, end: 20211231
  2. VENTAVIS [Concomitant]
     Active Substance: ILOPROST
     Indication: Pulmonary arterial hypertension
     Route: 045
     Dates: start: 20200720, end: 20220202
  3. SILDENAFIL [Concomitant]
     Active Substance: SILDENAFIL
     Indication: Pulmonary arterial hypertension
     Route: 048
     Dates: start: 20200713
  4. ELIQUIS [Concomitant]
     Active Substance: APIXABAN
     Indication: Anticoagulant therapy
     Route: 048
     Dates: start: 20200710
  5. EUTHYROX [Concomitant]
     Active Substance: LEVOTHYROXINE SODIUM
     Indication: Hyperthyroidism
     Route: 048
     Dates: start: 20200710
  6. REMODULIN [Concomitant]
     Active Substance: TREPROSTINIL
     Indication: Pulmonary arterial hypertension
     Route: 042
     Dates: start: 20220203

REACTIONS (4)
  - Cardiac failure [Recovering/Resolving]
  - Catheterisation cardiac [Unknown]
  - Eye contusion [Recovered/Resolved]
  - Fall [Unknown]

NARRATIVE: CASE EVENT DATE: 20211225
